FAERS Safety Report 15499482 (Version 1)
Quarter: 2018Q4

REPORT INFORMATION
  Report Type: Other
  Country: GB (occurrence: GB)
  Receive Date: 20181015
  Receipt Date: 20181015
  Transmission Date: 20190205
  Serious: Yes (Other)
  Sender: FDA-Public Use
  Company Number: GB-HERITAGE PHARMACEUTICALS-2018HTG00238

PATIENT

DRUGS (3)
  1. GABAPENTIN. [Concomitant]
     Active Substance: GABAPENTIN
     Dosage: UNK
  2. DOXAZOSIN [Suspect]
     Active Substance: DOXAZOSIN\DOXAZOSIN MESYLATE
     Indication: HYPERTENSION
     Dosage: CANT REMEMBER STRENGTH
     Dates: start: 20081127, end: 20110221
  3. COCODAMOL [Concomitant]
     Active Substance: ACETAMINOPHEN\CODEINE PHOSPHATE
     Indication: BACK PAIN
     Dosage: TWO-FOUR 30/500 TABLETS DAILY
     Dates: start: 20081205, end: 20121015

REACTIONS (2)
  - Urinary incontinence [Recovered/Resolved]
  - Bladder disorder [Recovered/Resolved]

NARRATIVE: CASE EVENT DATE: 2010
